FAERS Safety Report 11432479 (Version 3)
Quarter: 2015Q4

REPORT INFORMATION
  Report Type: Spontaneous
  Country: US (occurrence: US)
  Receive Date: 20150828
  Receipt Date: 20151020
  Transmission Date: 20160304
  Serious: Yes (Death, Life-Threatening, Hospitalization, Other)
  Sender: FDA-Public Use
  Company Number: US-009507513-1508USA013045

PATIENT
  Sex: Female
  Weight: 81.63 kg

DRUGS (1)
  1. JANUVIA [Suspect]
     Active Substance: SITAGLIPTIN PHOSPHATE
     Indication: TYPE 2 DIABETES MELLITUS
     Dosage: 100 MG, QD
     Route: 048
     Dates: start: 20100713, end: 20130119

REACTIONS (28)
  - Papillary thyroid cancer [Unknown]
  - Hepatic cyst [Unknown]
  - Aortic calcification [Unknown]
  - Hyperlipidaemia [Unknown]
  - Angiomyolipoma [Unknown]
  - Splenic lesion [Unknown]
  - Spinal osteoarthritis [Unknown]
  - Nasal septal operation [Unknown]
  - Tonsillectomy [Unknown]
  - Hypertension [Unknown]
  - Haematuria [Unknown]
  - Haemorrhagic hepatic cyst [Unknown]
  - Sinus disorder [Unknown]
  - Haemorrhagic hepatic cyst [Unknown]
  - Renal cyst [Unknown]
  - Diverticulum [Not Recovered/Not Resolved]
  - Ovarian cyst [Unknown]
  - Gastritis [Unknown]
  - Adenoidectomy [Unknown]
  - Uterine leiomyoma [Unknown]
  - Pulmonary fibrosis [Unknown]
  - Scoliosis [Unknown]
  - Death [Fatal]
  - Nephrolithiasis [Unknown]
  - Kidney fibrosis [Unknown]
  - Atelectasis [Unknown]
  - Adenocarcinoma pancreas [Unknown]
  - Umbilical hernia [Unknown]

NARRATIVE: CASE EVENT DATE: 20101126
